FAERS Safety Report 16020865 (Version 1)
Quarter: 2019Q1

REPORT INFORMATION
  Report Type: Spontaneous
  Country: US (occurrence: US)
  Receive Date: 20190201
  Receipt Date: 20190201
  Transmission Date: 20190418
  Serious: No
  Sender: FDA-Public Use
  Company Number: None

PATIENT
  Age: 50 Year
  Sex: Female

DRUGS (1)
  1. XELJANZ [Suspect]
     Active Substance: TOFACITINIB CITRATE
     Indication: PSORIATIC ARTHROPATHY
     Route: 048
     Dates: start: 20190110

REACTIONS (4)
  - Rhinorrhoea [None]
  - Oropharyngeal pain [None]
  - Headache [None]
  - Dizziness [None]

NARRATIVE: CASE EVENT DATE: 201901
